FAERS Safety Report 4631379-3 (Version None)
Quarter: 2005Q2

REPORT INFORMATION
  Report Type: 
  Country: None (occurrence: None)
  Receive Date: 20050407
  Receipt Date: 20031113
  Transmission Date: 20051028
  Serious: No
  Sender: FDA-Public Use
  Company Number: 6684

PATIENT
  Age: 71 Year
  Sex: Female

DRUGS (5)
  1. PACLITAXEL [Suspect]
     Dosage: 320 MG WEEKLY INJ
     Dates: start: 20030203, end: 20030203
  2. DEXAMETHASONE [Concomitant]
  3. PROMETHAZINE [Concomitant]
  4. RANITIDINE [Concomitant]
  5. DOLASETRON [Concomitant]

REACTIONS (2)
  - BACK PAIN [None]
  - FLUSHING [None]
